FAERS Safety Report 5807885-2 (Version None)
Quarter: 2008Q3

REPORT INFORMATION
  Report Type: 
  Country: None (occurrence: None)
  Receive Date: 20080711
  Receipt Date: 20080702
  Transmission Date: 20090109
  Serious: Yes (Hospitalization)
  Sender: FDA-Public Use
  Company Number: FR-BOEHRINGER INGELHEIM GMBH, GERMANY-2008-FF-00436FF

PATIENT
  Sex: Male
  Weight: 60 kg

DRUGS (5)
  1. ATROVENT [Suspect]
     Indication: EMPHYSEMA
     Route: 055
     Dates: start: 20071201
  2. OXYGEN [Concomitant]
     Dates: start: 20030101
  3. MAXAIR [Concomitant]
  4. SYMBICORT [Concomitant]
  5. BRICANYL [Concomitant]

REACTIONS (6)
  - ABDOMINAL PAIN UPPER [None]
  - CHEST PAIN [None]
  - DRY MOUTH [None]
  - DYSPNOEA [None]
  - MALAISE [None]
  - ORAL DISCOMFORT [None]
